FAERS Safety Report 8446018-3 (Version None)
Quarter: 2012Q2

REPORT INFORMATION
  Report Type: 
  Country: None (occurrence: None)
  Receive Date: 20120618
  Receipt Date: 20120611
  Transmission Date: 20120825
  Serious: Yes (Other)
  Sender: FDA-Public Use
  Company Number: BR-ROCHE-1033550

PATIENT
  Sex: Female
  Weight: 67 kg

DRUGS (7)
  1. PREDNISOLONE [Concomitant]
  2. MABTHERA [Suspect]
     Dates: start: 20111219
  3. METHOTREXATE [Suspect]
     Indication: PRODUCT USED FOR UNKNOWN INDICATION
     Route: 065
  4. DICLOFENAC SODIUM [Concomitant]
  5. MABTHERA [Suspect]
     Indication: PRODUCT USED FOR UNKNOWN INDICATION
     Dates: start: 20111104
  6. ACTEMRA [Suspect]
     Indication: RHEUMATOID ARTHRITIS
     Route: 042
     Dates: start: 20111104, end: 20111219
  7. CORTICOIDS [Concomitant]

REACTIONS (5)
  - HEPATIC CIRRHOSIS [None]
  - SPINAL DISORDER [None]
  - CERVICOBRACHIAL SYNDROME [None]
  - HEPATIC STEATOSIS [None]
  - GAMMA-GLUTAMYLTRANSFERASE INCREASED [None]
